FAERS Safety Report 15123353 (Version 1)
Quarter: 2018Q3

REPORT INFORMATION
  Report Type: Spontaneous
  Country: SE (occurrence: SE)
  Receive Date: 20180706
  Receipt Date: 20180706
  Transmission Date: 20181010
  Serious: Yes (Hospitalization)
  Sender: FDA-Public Use
  Company Number: SE-CONCORDIA PHARMACEUTICALS INC.-E2B_00013315

PATIENT
  Age: 1 Day
  Sex: Male

DRUGS (2)
  1. LANOXIN [Suspect]
     Active Substance: DIGOXIN
     Indication: ATRIAL FLUTTER
     Dosage: FICK UPPLADDNINGSDOS 40 MICROGRAM/KG/D
     Dates: start: 201806, end: 201806
  2. LANOXIN [Suspect]
     Active Substance: DIGOXIN
     Indication: TACHYCARDIA

REACTIONS (2)
  - Toxicity to various agents [Recovered/Resolved]
  - Cardioactive drug level above therapeutic [Recovered/Resolved]

NARRATIVE: CASE EVENT DATE: 201806
